FAERS Safety Report 17724923 (Version 2)
Quarter: 2020Q2

REPORT INFORMATION
  Report Type: Spontaneous
  Country: CO (occurrence: CO)
  Receive Date: 20200429
  Receipt Date: 20200617
  Transmission Date: 20200714
  Serious: Yes (Death, Hospitalization)
  Sender: FDA-Public Use
  Company Number: CO-BAXTER-2020BAX009183

PATIENT
  Sex: Female

DRUGS (1)
  1. DIANEAL PD-2 WITH DEXTROSE [Suspect]
     Active Substance: CALCIUM CHLORIDE\DEXTROSE\MAGNESIUM CHLORIDE\SODIUM CHLORIDE\SODIUM LACTATE
     Indication: CHRONIC KIDNEY DISEASE
     Dosage: 4 BAGS PER DAY
     Route: 033
     Dates: start: 2017, end: 202004

REACTIONS (3)
  - Acute myocardial infarction [Fatal]
  - Hypotension [Unknown]
  - Nosocomial infection [Unknown]
